FAERS Safety Report 4631577-9 (Version None)
Quarter: 2005Q2

REPORT INFORMATION
  Report Type: 
  Country: None (occurrence: None)
  Receive Date: 20050407
  Receipt Date: 20050326
  Transmission Date: 20051028
  Serious: Yes (Hospitalization)
  Sender: FDA-Public Use
  Company Number: MAG-2005-0000348

PATIENT
  Age: 54 Year
  Sex: Female

DRUGS (15)
  1. OXYCODONE HCL [Suspect]
     Indication: CANCER PAIN
     Dosage: 30 MG, DAILY, ORAL
     Route: 048
     Dates: start: 20050224
  2. OXYCODONE HCL [Suspect]
     Dosage: 5 MG, PRN, ORAL
     Route: 048
     Dates: start: 20050225
  3. DEPAS (ETIZOLAM) [Concomitant]
  4. BRONCIN [Concomitant]
  5. DEXAMETHASONE [Concomitant]
  6. ZANTAC [Concomitant]
  7. LOXONIN (LOXOPROFEN SODIUM) [Concomitant]
  8. SALICYLIC ACID (SALICYLIC ACID) [Concomitant]
  9. MAG-LAX (PARAFFIN, LIQUID, MAGNESIUM HYDROXIDE) [Concomitant]
  10. FLAVERIC (BENPROPERINE PHOSPHATE) [Concomitant]
  11. KENALOG [Concomitant]
  12. CATLEP [Concomitant]
  13. XYLOCAINE [Concomitant]
  14. MAZULENIN G [Concomitant]
  15. CODEINE PHOSPHATE [Concomitant]

REACTIONS (4)
  - AFFECT LABILITY [None]
  - APHASIA [None]
  - EXCITABILITY [None]
  - HYPERVENTILATION [None]
